FAERS Safety Report 18898748 (Version 1)
Quarter: 2021Q1

REPORT INFORMATION
  Report Type: Spontaneous
  Country: US (occurrence: US)
  Receive Date: 20210212
  Receipt Date: 20210212
  Transmission Date: 20210420
  Serious: Yes (Hospitalization)
  Sender: FDA-Public Use
  Company Number: None

PATIENT
  Age: 62 Year
  Sex: Female

DRUGS (1)
  1. PROCRIT [Suspect]
     Active Substance: ERYTHROPOIETIN
     Indication: IRON DEFICIENCY ANAEMIA
     Route: 058
     Dates: start: 20200630

REACTIONS (2)
  - Peripheral swelling [None]
  - Cellulitis [None]

NARRATIVE: CASE EVENT DATE: 20210206
